FAERS Safety Report 19990935 (Version 1)
Quarter: 2021Q4

REPORT INFORMATION
  Report Type: Spontaneous
  Country: US (occurrence: US)
  Receive Date: 20211025
  Receipt Date: 20211025
  Transmission Date: 20220303
  Serious: Yes (Hospitalization)
  Sender: FDA-Public Use
  Company Number: None

PATIENT
  Age: 7 Year
  Sex: Female
  Weight: 31.95 kg

DRUGS (5)
  1. TRIKAFTA [Suspect]
     Active Substance: ELEXACAFTOR\IVACAFTOR\TEZACAFTOR
     Indication: Cystic fibrosis
     Dosage: ?          OTHER FREQUENCY:2QAM, 1QPM;
     Route: 048
     Dates: start: 20210823, end: 20211004
  2. ALBUTEROL [Concomitant]
     Active Substance: ALBUTEROL
  3. SODIUM CHLORIDE [Concomitant]
     Active Substance: SODIUM CHLORIDE
  4. PULMOZYME [Concomitant]
     Active Substance: DORNASE ALFA
  5. AIRWAY CLEARING VEST [Concomitant]

REACTIONS (3)
  - Anxiety [None]
  - Depression [None]
  - Mental disorder [None]

NARRATIVE: CASE EVENT DATE: 20211013
